FAERS Safety Report 7588496-8 (Version None)
Quarter: 2011Q3

REPORT INFORMATION
  Report Type: 
  Country: None (occurrence: None)
  Receive Date: 20110705
  Receipt Date: 20110628
  Transmission Date: 20111222
  Serious: Yes (Hospitalization, Other)
  Sender: FDA-Public Use
  Company Number: CA-PFIZER INC-2011145005

PATIENT
  Age: 53 Year
  Sex: Male

DRUGS (5)
  1. LYRICA [Suspect]
     Dosage: NORMAL DOSE
     Dates: start: 20110628
  2. OXYCONTIN [Concomitant]
     Dosage: UNK
  3. LYRICA [Suspect]
     Indication: NEUROPATHY PERIPHERAL
     Dosage: UNK
     Route: 048
     Dates: start: 20080101
  4. LYRICA [Suspect]
     Dosage: 150 MG, 2X/DAY
     Dates: end: 20110623
  5. ATIVAN [Concomitant]
     Dosage: UNK

REACTIONS (18)
  - DELIRIUM [None]
  - IRRITABILITY [None]
  - BRAIN OEDEMA [None]
  - PAIN IN EXTREMITY [None]
  - HEADACHE [None]
  - HALLUCINATION [None]
  - INSOMNIA [None]
  - FATIGUE [None]
  - CHRONIC OBSTRUCTIVE PULMONARY DISEASE [None]
  - ANXIETY [None]
  - DIARRHOEA [None]
  - RESTLESSNESS [None]
  - WITHDRAWAL SYNDROME [None]
  - NAUSEA [None]
  - AGITATION [None]
  - LOSS OF CONSCIOUSNESS [None]
  - LETHARGY [None]
  - HYPERHIDROSIS [None]
